FAERS Safety Report 23575854 (Version 1)
Quarter: 2024Q1

REPORT INFORMATION
  Report Type: Spontaneous
  Country: JP (occurrence: JP)
  Receive Date: 20240228
  Receipt Date: 20240228
  Transmission Date: 20240409
  Serious: Yes (Hospitalization, Other)
  Sender: FDA-Public Use
  Company Number: JP-MSD-M2024-02944

PATIENT
  Age: 47 Year
  Sex: Female
  Weight: 100 kg

DRUGS (4)
  1. KEYTRUDA [Suspect]
     Active Substance: PEMBROLIZUMAB
     Indication: Cervix carcinoma stage IV
     Dosage: 200 MILLIGRAM, Q3W
     Route: 041
     Dates: start: 20230309, end: 20231101
  2. PACLITAXEL [Concomitant]
     Active Substance: PACLITAXEL
     Indication: Cervix carcinoma stage IV
     Dosage: UNK
     Route: 065
     Dates: start: 20230309, end: 2023
  3. CARBOPLATIN [Concomitant]
     Active Substance: CARBOPLATIN
     Indication: Cervix carcinoma stage IV
     Dosage: UNK
     Route: 065
     Dates: start: 20230309, end: 2023
  4. AVASTIN [Concomitant]
     Active Substance: BEVACIZUMAB
     Indication: Cervix carcinoma stage IV
     Dosage: UNK
     Route: 065
     Dates: start: 20230309, end: 2023

REACTIONS (3)
  - Malignant neoplasm progression [Recovering/Resolving]
  - Duodenal ulcer [Recovering/Resolving]
  - Meningitis [Recovering/Resolving]

NARRATIVE: CASE EVENT DATE: 20231101
